FAERS Safety Report 20097033 (Version 1)
Quarter: 2021Q4

REPORT INFORMATION
  Report Type: Spontaneous
  Country: US (occurrence: US)
  Receive Date: 20211122
  Receipt Date: 20211122
  Transmission Date: 20220303
  Serious: Yes (Hospitalization)
  Sender: FDA-Public Use
  Company Number: US-BEH-2021138335

PATIENT
  Age: 8 Year
  Sex: Male

DRUGS (4)
  1. IDELVION [Suspect]
     Active Substance: COAGULATION FACTOR IX RECOMBINANT HUMAN
     Indication: Abnormal clotting factor
     Dosage: 2000 INTERNATIONAL UNIT, QW
     Route: 042
     Dates: start: 20211006
  2. IDELVION [Suspect]
     Active Substance: COAGULATION FACTOR IX RECOMBINANT HUMAN
     Indication: Abnormal clotting factor
     Dosage: 2000 INTERNATIONAL UNIT, QW
     Route: 042
     Dates: start: 20211006
  3. IDELVION [Suspect]
     Active Substance: COAGULATION FACTOR IX RECOMBINANT HUMAN
     Indication: Abnormal clotting factor
     Dosage: 2000 INTERNATIONAL UNIT, PRN
     Route: 042
     Dates: start: 20211006
  4. IDELVION [Suspect]
     Active Substance: COAGULATION FACTOR IX RECOMBINANT HUMAN
     Indication: Abnormal clotting factor
     Dosage: 2000 INTERNATIONAL UNIT, PRN
     Route: 042
     Dates: start: 20211006

REACTIONS (2)
  - Head injury [Unknown]
  - Head injury [Unknown]

NARRATIVE: CASE EVENT DATE: 20211001
